FAERS Safety Report 6081016-9 (Version None)
Quarter: 2009Q1

REPORT INFORMATION
  Report Type: 
  Country: None (occurrence: None)
  Receive Date: 20090217
  Receipt Date: 20090206
  Transmission Date: 20090719
  Serious: Yes (Other)
  Sender: FDA-Public Use
  Company Number: PHHY2009BR04489

PATIENT
  Age: 57 Year
  Sex: Male
  Weight: 86 kg

DRUGS (6)
  1. DIOVAN AMLO FIX [Suspect]
     Indication: HYPERTENSION
     Dosage: 160/10 MG DAILY
     Route: 048
     Dates: start: 20080901
  2. CRESTOR [Concomitant]
     Indication: BLOOD CHOLESTEROL
     Dosage: 20 MG DAILY
     Route: 048
     Dates: start: 20070101
  3. FENOFIBRATE [Concomitant]
     Indication: BLOOD CHOLESTEROL
     Dosage: 250 MG/DAY
     Route: 048
     Dates: start: 20060101
  4. GALVUS [Concomitant]
     Indication: TYPE 2 DIABETES MELLITUS
     Dosage: 2 TABLETS (50MG)/DAY
     Route: 048
     Dates: start: 20070101
  5. ASPIRIN [Concomitant]
     Indication: CARDIAC DISORDER
     Dosage: 2 TABLETS (100 MG)/DAY
     Route: 048
     Dates: start: 20050101
  6. GLUCOVANCE [Concomitant]
     Indication: TYPE 2 DIABETES MELLITUS
     Dosage: 2 TABLETS (500/2.5 MG)/DAY
     Route: 048
     Dates: start: 20040101

REACTIONS (7)
  - BLISTER [None]
  - DANDRUFF [None]
  - EPISTAXIS [None]
  - ERYTHEMA [None]
  - PRURITUS [None]
  - SECRETION DISCHARGE [None]
  - STRESS [None]
